FAERS Safety Report 8277107-4 (Version None)
Quarter: 2012Q2

REPORT INFORMATION
  Report Type: 
  Country: None (occurrence: None)
  Receive Date: 20120412
  Receipt Date: 20120328
  Transmission Date: 20120825
  Serious: Yes (Other)
  Sender: FDA-Public Use
  Company Number: JP-ROCHE-1048170

PATIENT
  Sex: Male
  Weight: 60 kg

DRUGS (7)
  1. PACLITAXEL [Concomitant]
     Indication: LUNG ADENOCARCINOMA METASTATIC
     Route: 041
     Dates: start: 20110318, end: 20110624
  2. CARBOPLATIN [Concomitant]
     Route: 041
     Dates: start: 20111221, end: 20120118
  3. CARBOPLATIN [Concomitant]
     Indication: LUNG ADENOCARCINOMA METASTATIC
     Route: 041
     Dates: start: 20110318, end: 20110624
  4. AVASTIN [Suspect]
     Indication: LUNG ADENOCARCINOMA METASTATIC
     Route: 041
     Dates: start: 20110318, end: 20110624
  5. PACLITAXEL [Concomitant]
     Route: 041
     Dates: start: 20111221, end: 20120201
  6. AVASTIN [Suspect]
     Route: 041
     Dates: start: 20111221, end: 20120118
  7. ASPIRIN [Suspect]
     Indication: PRODUCT USED FOR UNKNOWN INDICATION
     Dosage: DOSAGE IS UNCERTAIN.
     Route: 048

REACTIONS (3)
  - CEREBRAL HAEMORRHAGE [None]
  - METASTASES TO LIVER [None]
  - METASTASES TO THYROID [None]
